FAERS Safety Report 6982906-2 (Version None)
Quarter: 2010Q3

REPORT INFORMATION
  Report Type: 
  Country: None (occurrence: None)
  Receive Date: 20100914
  Receipt Date: 20100421
  Transmission Date: 20110219
  Serious: No
  Sender: FDA-Public Use
  Company Number: US-PFIZER INC-2010050528

PATIENT

DRUGS (2)
  1. LYRICA [Suspect]
  2. MYLOTARG [Suspect]

REACTIONS (1)
  - MYALGIA [None]
